FAERS Safety Report 23129652 (Version 3)
Quarter: 2023Q4

REPORT INFORMATION
  Report Type: Report from Study
  Country: JO (occurrence: JO)
  Receive Date: 20231031
  Receipt Date: 20231113
  Transmission Date: 20240110
  Serious: Yes (Life-Threatening, Hospitalization)
  Sender: FDA-Public Use
  Company Number: JO-002147023-NVSC2023JO231741

PATIENT
  Age: 14 Year
  Sex: Male
  Weight: 38 kg

DRUGS (4)
  1. MEKINIST [Suspect]
     Active Substance: TRAMETINIB DIMETHYL SULFOXIDE
     Indication: Glioma
     Dosage: 0.025 MG/KG, QD
     Route: 048
     Dates: start: 20200615, end: 20231002
  2. KEPPRA [Concomitant]
     Active Substance: LEVETIRACETAM
     Indication: Seizure
     Dosage: 750 MG, BID
     Route: 065
     Dates: start: 20181101, end: 20231024
  3. TOPAMAX [Concomitant]
     Active Substance: TOPIRAMATE
     Indication: Seizure
     Dosage: 50 MG, BID
     Route: 065
     Dates: start: 20190401, end: 20231024
  4. DECAPEPTYL [Concomitant]
     Indication: Precocious puberty
     Dosage: 11.25 MG
     Route: 065
     Dates: start: 20210201, end: 20231024

REACTIONS (5)
  - Haemorrhage intracranial [Recovering/Resolving]
  - Headache [Recovered/Resolved]
  - Cerebral haemorrhage [Recovered/Resolved]
  - Subarachnoid haemorrhage [Recovered/Resolved]
  - Intraventricular haemorrhage [Recovered/Resolved]

NARRATIVE: CASE EVENT DATE: 20231002
